FAERS Safety Report 4306916-9 (Version None)
Quarter: 2004Q1

REPORT INFORMATION
  Report Type: 
  Country: None (occurrence: None)
  Receive Date: 20040227
  Receipt Date: 20040227
  Transmission Date: 20041129
  Serious: Yes (Death, Other)
  Sender: FDA-Public Use
  Company Number: None

PATIENT
  Sex: Male

DRUGS (1)
  1. DR. SCHOLL'S CALLUS REMOVERS DISC [Suspect]
     Indication: SOFT TISSUE DISORDER
     Dosage: TOP-DERM
     Route: 061

REACTIONS (2)
  - LOCALISED INFECTION [None]
  - SKIN FISSURES [None]
